FAERS Safety Report 7463438-4 (Version None)
Quarter: 2011Q2

REPORT INFORMATION
  Report Type: 
  Country: None (occurrence: None)
  Receive Date: 20110506
  Receipt Date: 20110503
  Transmission Date: 20111010
  Serious: Yes (Death)
  Sender: FDA-Public Use
  Company Number: B0716927A

PATIENT
  Sex: Male
  Weight: 75 kg

DRUGS (2)
  1. TRAMADOL [Concomitant]
     Indication: PAIN
     Dates: start: 20100717
  2. HYCAMTIN [Suspect]
     Route: 048
     Dates: start: 20110105, end: 20110119

REACTIONS (1)
  - FEBRILE NEUTROPENIA [None]
